FAERS Safety Report 5926113-0 (Version None)
Quarter: 2008Q4

REPORT INFORMATION
  Report Type: 
  Country: None (occurrence: None)
  Receive Date: 20081016
  Receipt Date: 20081002
  Transmission Date: 20090506
  Serious: Yes (Other)
  Sender: FDA-Public Use
  Company Number: PHHY2008NZ23309

PATIENT
  Sex: Female

DRUGS (1)
  1. VISUDYNE [Suspect]
     Dates: start: 20080926, end: 20080926

REACTIONS (7)
  - BLISTER [None]
  - HYPERSENSITIVITY [None]
  - INFUSION SITE ERYTHEMA [None]
  - INFUSION SITE RASH [None]
  - LIP SWELLING [None]
  - PRURITUS GENERALISED [None]
  - RASH ERYTHEMATOUS [None]
